FAERS Safety Report 4817602-0 (Version None)
Quarter: 2005Q4

REPORT INFORMATION
  Report Type: 
  Country: None (occurrence: None)
  Receive Date: 20051031
  Receipt Date: 20051026
  Transmission Date: 20060501
  Serious: Yes (Death)
  Sender: FDA-Public Use
  Company Number: 2005146861

PATIENT
  Age: 24 Year
  Sex: Female
  Weight: 67 kg

DRUGS (1)
  1. BENADRYL [Suspect]
     Dosage: UNSPECIFIED AMOUNT ONCE, ORAL
     Route: 048
     Dates: start: 20050518, end: 20050518

REACTIONS (1)
  - OVERDOSE [None]
